FAERS Safety Report 4280561-6 (Version None)
Quarter: 2004Q1

REPORT INFORMATION
  Report Type: 
  Country: None (occurrence: None)
  Receive Date: 20040127
  Receipt Date: 20041212
  Transmission Date: 20041129
  Serious: Yes (Hospitalization)
  Sender: FDA-Public Use
  Company Number: STA-AE-04-MTX-021

PATIENT
  Age: 47 Year
  Sex: Female

DRUGS (3)
  1. METHOTREXATE [Suspect]
     Dosage: 15MG WEEKLY
  2. PREDNISOLONE [Concomitant]
  3. CYCLOSPORINE [Concomitant]

REACTIONS (13)
  - BLOOD CREATININE INCREASED [None]
  - CYTOMEGALOVIRUS ANTIGEN POSITIVE [None]
  - DYSPNOEA [None]
  - DYSURIA [None]
  - GENITAL ULCERATION [None]
  - HAEMOGLOBIN DECREASED [None]
  - HERPES VIRUS INFECTION [None]
  - NITRITE URINE PRESENT [None]
  - PNEUMOCYSTIS CARINII INFECTION [None]
  - PNEUMONIA [None]
  - PYELONEPHRITIS [None]
  - PYREXIA [None]
  - STOMATITIS [None]
